FAERS Safety Report 5994378-5 (Version None)
Quarter: 2008Q4

REPORT INFORMATION
  Report Type: 
  Country: None (occurrence: None)
  Receive Date: 20081212
  Receipt Date: 20080905
  Transmission Date: 20090506
  Serious: No
  Sender: FDA-Public Use
  Company Number: US-ABBOTT-08P-163-0475152-00

PATIENT
  Sex: Female
  Weight: 58.112 kg

DRUGS (4)
  1. HUMIRA [Suspect]
     Indication: PSORIASIS
     Route: 058
     Dates: start: 20080826
  2. HUMIRA [Suspect]
     Route: 058
  3. HUMIRA [Suspect]
     Route: 058
  4. LOESTRIN SE 28 [Concomitant]
     Indication: CONTRACEPTION
     Route: 048

REACTIONS (4)
  - FATIGUE [None]
  - HEADACHE [None]
  - NASOPHARYNGITIS [None]
  - PAIN [None]
